FAERS Safety Report 6618181-8 (Version None)
Quarter: 2010Q1

REPORT INFORMATION
  Report Type: 
  Country: None (occurrence: None)
  Receive Date: 20100308
  Receipt Date: 20100225
  Transmission Date: 20100710
  Serious: Yes (Life-Threatening, Hospitalization)
  Sender: FDA-Public Use
  Company Number: CH-ROCHE-687702

PATIENT
  Age: 88 Year
  Sex: Female

DRUGS (13)
  1. TAMIFLU [Suspect]
     Indication: INFLUENZA
     Route: 048
     Dates: start: 20091115, end: 20091120
  2. ECOFENAC [Suspect]
     Indication: INFLUENZA
     Route: 048
     Dates: start: 20091115, end: 20091120
  3. AMOXICILLIN [Suspect]
     Indication: DRUG USE FOR UNKNOWN INDICATION
     Route: 048
     Dates: start: 20091115, end: 20091101
  4. CIPROFLOXACIN [Suspect]
     Indication: DRUG USE FOR UNKNOWN INDICATION
     Dosage: DRUG NAME: CIP ECO
     Route: 048
     Dates: start: 20091123, end: 20091130
  5. QUININE SULFATE [Suspect]
     Route: 065
     Dates: start: 20080101, end: 20091203
  6. CREON [Concomitant]
     Dosage: DRUG NAME: CREON FORTE
  7. PARACETAMOL [Concomitant]
     Dosage: DRUG NAME: ACETALGINE; DOSAGE: AS NEEDED
  8. TRAMADOL HCL [Concomitant]
     Dosage: DRUG NAME: ECODOLOR
     Route: 048
  9. COVERSUM [Concomitant]
     Route: 048
  10. TORSEMIDE [Concomitant]
     Route: 048
  11. OSSOPAN [Concomitant]
     Route: 048
  12. VI-DE 3 [Concomitant]
  13. MAGNESIUM [Concomitant]

REACTIONS (3)
  - DIARRHOEA [None]
  - RENAL FAILURE ACUTE [None]
  - VOMITING [None]
